FAERS Safety Report 19363200 (Version 1)
Quarter: 2021Q2

REPORT INFORMATION
  Report Type: Spontaneous
  Country: US (occurrence: US)
  Receive Date: 20210602
  Receipt Date: 20210602
  Transmission Date: 20210717
  Serious: No
  Sender: FDA-Public Use
  Company Number: US-CIPLA LTD.-2021US03482

PATIENT

DRUGS (4)
  1. IBANDRONATE [Concomitant]
     Active Substance: IBANDRONATE SODIUM
     Indication: BONE DENSITY ABNORMAL
     Dosage: 150 MILLIGRAM, ONCE A WEEK
     Route: 065
     Dates: start: 2019
  2. JANUMET [Concomitant]
     Active Substance: METFORMIN HYDROCHLORIDE\SITAGLIPTIN PHOSPHATE
     Indication: GLUCOSE TOLERANCE IMPAIRED
     Dosage: 1 DOSAGE FORM (50/1000 MG), QD
     Route: 065
     Dates: start: 2018
  3. LEVOTHYROXINE. [Suspect]
     Active Substance: LEVOTHYROXINE
     Indication: HYPERTHYROIDISM
     Dosage: 75 MILLIGRAM, QD, MYLAN MANUFACTURED
     Route: 065
  4. DICLOFENAC [Suspect]
     Active Substance: DICLOFENAC
     Indication: ARTHRITIS
     Dosage: 2 GRAM, ONCE OR TWICE A DAY
     Route: 061
     Dates: start: 20210330, end: 20210330

REACTIONS (9)
  - Application site swelling [Recovered/Resolved]
  - Contusion [Recovered/Resolved]
  - Application site rash [Recovered/Resolved]
  - Acne [Not Recovered/Not Resolved]
  - Application site burn [Recovered/Resolved]
  - Off label use [Unknown]
  - Product use in unapproved indication [Unknown]
  - Application site vesicles [Recovered/Resolved]
  - Erythema [Recovering/Resolving]

NARRATIVE: CASE EVENT DATE: 202103
